FAERS Safety Report 11327809 (Version 1)
Quarter: 2015Q3

REPORT INFORMATION
  Report Type: Report from Study
  Country: DE (occurrence: DE)
  Receive Date: 20150731
  Receipt Date: 20150731
  Transmission Date: 20151125
  Serious: Yes (Life-Threatening)
  Sender: FDA-Public Use
  Company Number: DE-ASTRAZENECA-2015SE70794

PATIENT
  Age: 79 Year
  Sex: Male

DRUGS (15)
  1. VALDOXAN [Concomitant]
     Active Substance: AGOMELATINE
     Route: 048
     Dates: start: 20150515, end: 20150530
  2. SEROQUEL [Suspect]
     Active Substance: QUETIAPINE FUMARATE
     Indication: DEPRESSION
     Route: 048
     Dates: start: 20150529, end: 20150530
  3. MORPHIN [Concomitant]
     Active Substance: MORPHINE
     Route: 042
  4. SEROQUEL [Suspect]
     Active Substance: QUETIAPINE FUMARATE
     Indication: DEPRESSION
     Route: 048
     Dates: start: 20150527, end: 20150527
  5. SEROQUEL [Suspect]
     Active Substance: QUETIAPINE FUMARATE
     Indication: DEPRESSION
     Route: 048
     Dates: start: 20150531, end: 20150531
  6. SIMVASTATIN. [Concomitant]
     Active Substance: SIMVASTATIN
     Route: 048
  7. SPIRONOLACTONE. [Concomitant]
     Active Substance: SPIRONOLACTONE
     Route: 048
  8. SEROQUEL [Suspect]
     Active Substance: QUETIAPINE FUMARATE
     Indication: DEPRESSION
     Dosage: 25-100 MG/DAILY
     Route: 048
     Dates: start: 20150512, end: 20150526
  9. OXAZEPAM. [Concomitant]
     Active Substance: OXAZEPAM
     Dosage: 20-30 MG/D
     Route: 048
  10. SALBUTAMOL [Concomitant]
     Active Substance: ALBUTEROL
     Route: 055
  11. ASPIRIN PROTECT [Concomitant]
     Active Substance: ASPIRIN
     Route: 048
  12. PANTOZOL [Concomitant]
     Active Substance: PANTOPRAZOLE SODIUM
     Route: 048
  13. BERLTHYROX [Concomitant]
     Route: 048
     Dates: start: 20150422, end: 20150531
  14. SEROQUEL [Suspect]
     Active Substance: QUETIAPINE FUMARATE
     Indication: DEPRESSION
     Route: 048
     Dates: start: 20150528, end: 20150528
  15. BIFITERAL [Concomitant]
     Active Substance: LACTULOSE
     Route: 048

REACTIONS (1)
  - Ventricular fibrillation [Recovered/Resolved]

NARRATIVE: CASE EVENT DATE: 20150531
